FAERS Safety Report 5742318-6 (Version None)
Quarter: 2008Q2

REPORT INFORMATION
  Report Type: 
  Country: None (occurrence: None)
  Receive Date: 20080519
  Receipt Date: 20080513
  Transmission Date: 20081010
  Serious: Yes (Other)
  Sender: FDA-Public Use
  Company Number: DE-BAYER-200813289GPV

PATIENT
  Age: 69 Year
  Sex: Female

DRUGS (1)
  1. AVELOX [Suspect]
     Indication: BRONCHOPNEUMONIA
     Route: 048
     Dates: start: 20080205, end: 20080207

REACTIONS (2)
  - MUSCULAR WEAKNESS [None]
  - MYASTHENIA GRAVIS [None]
